FAERS Safety Report 10931606 (Version 2)
Quarter: 2015Q3

REPORT INFORMATION
  Report Type: Spontaneous
  Country: US (occurrence: US)
  Receive Date: 20150319
  Receipt Date: 20150904
  Transmission Date: 20151125
  Serious: Yes (Hospitalization, Other)
  Sender: FDA-Public Use
  Company Number: US-B.I. PHARMACEUTICALS,INC./RIDGEFIELD-2015-BI-13095BP

PATIENT
  Age: 71 Year
  Sex: Male
  Weight: 111 kg

DRUGS (1)
  1. COMBIVENT [Suspect]
     Active Substance: ALBUTEROL SULFATE\IPRATROPIUM BROMIDE
     Indication: CHRONIC OBSTRUCTIVE PULMONARY DISEASE
     Dosage: STRENGTH: 20 MCG/100 MCG; DAILY DOSE: 80 MCG/400 MCG
     Route: 055
     Dates: start: 201110

REACTIONS (11)
  - Cardiac failure [Not Recovered/Not Resolved]
  - Gout [Recovered/Resolved]
  - Cerebrovascular accident [Recovered/Resolved]
  - Phimosis [Recovered/Resolved]
  - Retinal artery occlusion [Recovered/Resolved]
  - Gout [Recovered/Resolved]
  - Renal disorder [Not Recovered/Not Resolved]
  - Thrombosis [Recovered/Resolved]
  - Blindness unilateral [Recovered/Resolved]
  - Blindness [Recovered/Resolved]
  - Myocardial infarction [Recovered/Resolved]

NARRATIVE: CASE EVENT DATE: 201410
